FAERS Safety Report 7349859-9 (Version None)
Quarter: 2011Q1

REPORT INFORMATION
  Report Type: 
  Country: None (occurrence: None)
  Receive Date: 20110314
  Receipt Date: 20110228
  Transmission Date: 20110831
  Serious: Yes (Other)
  Sender: FDA-Public Use
  Company Number: US-ROCHE-743270

PATIENT
  Sex: Female
  Weight: 66.7 kg

DRUGS (14)
  1. ACCUTANE [Suspect]
     Route: 048
     Dates: start: 19940415
  2. ACCUTANE [Suspect]
     Route: 048
     Dates: start: 19960101
  3. ACCUTANE [Suspect]
     Route: 048
     Dates: start: 19950804
  4. AMNESTEEM [Suspect]
     Indication: ACNE
     Route: 065
     Dates: start: 20030611, end: 20030930
  5. ACCUTANE [Suspect]
     Route: 048
  6. ALBUTEROL [Concomitant]
     Indication: ASTHMA
  7. ALLEGRA [Concomitant]
  8. ACCUTANE [Suspect]
     Route: 048
     Dates: start: 20030527
  9. ACCUTANE [Suspect]
     Route: 048
     Dates: end: 20040301
  10. ACCUTANE [Suspect]
     Indication: ACNE
     Route: 048
     Dates: start: 19930419
  11. ACCUTANE [Suspect]
     Route: 048
     Dates: start: 19970514
  12. IBUPROFEN [Concomitant]
  13. XANAX [Concomitant]
     Indication: ANXIETY
  14. ACCUTANE [Suspect]
     Route: 048
     Dates: start: 20020701

REACTIONS (14)
  - EPISTAXIS [None]
  - PSORIASIS [None]
  - SUNBURN [None]
  - BLOOD CHOLESTEROL INCREASED [None]
  - LIP DRY [None]
  - MUSCULOSKELETAL STIFFNESS [None]
  - DEPRESSION [None]
  - DRY SKIN [None]
  - INFLAMMATORY BOWEL DISEASE [None]
  - MYALGIA [None]
  - DIVERTICULUM [None]
  - COLITIS ULCERATIVE [None]
  - ECZEMA NUMMULAR [None]
  - ARTHRALGIA [None]
